FAERS Safety Report 9037572 (Version 2)
Quarter: 2013Q1

REPORT INFORMATION
  Report Type: Spontaneous
  Country: DE (occurrence: DE)
  Receive Date: 20130129
  Receipt Date: 20130320
  Transmission Date: 20140127
  Serious: Yes (Hospitalization)
  Sender: FDA-Public Use
  Company Number: DE-AMGEN-DEUSP2013005858

PATIENT
  Age: 18 Year
  Sex: Female
  Weight: 53.7 kg

DRUGS (3)
  1. ENBREL [Suspect]
     Indication: PRODUCT USED FOR UNKNOWN INDICATION
     Dosage: 25 MG, 2 TIMES/WK, MORNING
     Route: 058
     Dates: start: 20110721, end: 20121215
  2. IBUPROFEN [Concomitant]
     Indication: ARTHRALGIA
     Dosage: 200-400 MG/DAY, AS NEEDED, MORNING
     Route: 048
  3. L-THYROXIN [Concomitant]
     Indication: PRODUCT USED FOR UNKNOWN INDICATION
     Dosage: 100 MUG, QD, MORNING
     Route: 048

REACTIONS (13)
  - Hepatitis [Recovered/Resolved]
  - Bilirubin conjugated increased [Unknown]
  - Blood bilirubin increased [Unknown]
  - Gamma-glutamyltransferase increased [Unknown]
  - Hepatitis B surface antibody positive [Unknown]
  - High density lipoprotein decreased [Unknown]
  - Lipase increased [Unknown]
  - Haematocrit decreased [Unknown]
  - Haemoglobin decreased [Unknown]
  - Red blood cell count decreased [Unknown]
  - Aspartate aminotransferase increased [Unknown]
  - Alanine aminotransferase increased [Unknown]
  - Gastroenteritis [Unknown]
